FAERS Safety Report 4404600-4 (Version None)
Quarter: 2004Q3

REPORT INFORMATION
  Report Type: 
  Country: None (occurrence: None)
  Receive Date: 20040720
  Receipt Date: 20040707
  Transmission Date: 20050211
  Serious: Yes (Death, Hospitalization, Other)
  Sender: FDA-Public Use
  Company Number: 2004046486

PATIENT
  Age: 7 Year
  Sex: Female

DRUGS (7)
  1. FLUCONAZOLE [Suspect]
     Indication: OESOPHAGEAL CANDIDIASIS
     Dosage: INTRAVENOUS
     Route: 042
  2. FLUCONAZOLE [Suspect]
     Indication: SYSTEMIC CANDIDA
     Dosage: INTRAVENOUS
     Route: 042
  3. BUSULFAN (BUSULFAN) [Suspect]
     Indication: MEDULLOBLASTOMA
  4. THIOTEPA [Suspect]
     Indication: MEDULLOBLASTOMA
  5. ALL OTHER THERAPEUTIC PRODUCTS (ALL OTHER THERAPEUTIC PRODUCTS) [Suspect]
     Indication: MEDULLOBLASTOMA
     Dates: start: 20040316, end: 20040423
  6. ETOPOSIDE [Concomitant]
  7. CARBOPLATIN [Concomitant]

REACTIONS (42)
  - ACTIVATED PARTIAL THROMBOPLASTIN TIME SHORTENED [None]
  - ATAXIA [None]
  - BACTERIAL CULTURE POSITIVE [None]
  - BALANCE DISORDER [None]
  - BLEPHAROSPASM [None]
  - BLOOD BILIRUBIN ABNORMAL [None]
  - BLOOD PRESSURE DECREASED [None]
  - BRONCHOSPASM [None]
  - COMA [None]
  - CONDITION AGGRAVATED [None]
  - DEHYDRATION [None]
  - DIPLOPIA [None]
  - DISEASE RECURRENCE [None]
  - ELECTROENCEPHALOGRAM ABNORMAL [None]
  - GENERAL PHYSICAL HEALTH DETERIORATION [None]
  - HAEMODYNAMIC INSTABILITY [None]
  - HAEMOGLOBIN DECREASED [None]
  - HAPTOGLOBIN INCREASED [None]
  - HEART RATE INCREASED [None]
  - HYPERBILIRUBINAEMIA [None]
  - INFECTION [None]
  - LYMPHOPENIA [None]
  - MULTI-ORGAN FAILURE [None]
  - NASOPHARYNGEAL DISORDER [None]
  - NERVOUS SYSTEM DISORDER [None]
  - NYSTAGMUS [None]
  - OEDEMA [None]
  - OESOPHAGEAL CANDIDIASIS [None]
  - PSEUDOMONAS INFECTION [None]
  - PULMONARY INTERSTITIAL EMPHYSEMA SYNDROME [None]
  - PULSE PRESSURE DECREASED [None]
  - PUPILLARY LIGHT REFLEX TESTS ABNORMAL [None]
  - RADIATION INJURY [None]
  - RASH MACULAR [None]
  - RED BLOOD CELL SCHISTOCYTES PRESENT [None]
  - RENAL FAILURE [None]
  - RESPIRATORY DISTRESS [None]
  - RESPIRATORY TRACT CONGESTION [None]
  - SOMNOLENCE [None]
  - STAPHYLOCOCCAL INFECTION [None]
  - VERTIGO [None]
  - VITH NERVE PARALYSIS [None]
